FAERS Safety Report 24565345 (Version 1)
Quarter: 2024Q4

REPORT INFORMATION
  Report Type: Spontaneous
  Country: US (occurrence: None)
  Receive Date: 20241029
  Receipt Date: 20241029
  Transmission Date: 20250115
  Serious: Yes (Life-Threatening, Hospitalization)
  Sender: Public
  Company Number: None

PATIENT
  Age: 75 Year
  Sex: Male

DRUGS (1)
  1. APIXABAN [Suspect]
     Active Substance: APIXABAN
     Indication: Deep vein thrombosis
     Dosage: FREQUENCY : TWICE A DAY;?
     Route: 048
     Dates: start: 20240625, end: 20240705

REACTIONS (7)
  - Anaemia [None]
  - Gastrointestinal haemorrhage [None]
  - Melaena [None]
  - Abdominal distension [None]
  - Dizziness [None]
  - Haemoglobin decreased [None]
  - Hypovolaemia [None]

NARRATIVE: CASE EVENT DATE: 20240705
